FAERS Safety Report 14107354 (Version 1)
Quarter: 2017Q4

REPORT INFORMATION
  Report Type: Spontaneous
  Country: US (occurrence: US)
  Receive Date: 20171019
  Receipt Date: 20171019
  Transmission Date: 20180321
  Serious: Yes (Other)
  Sender: FDA-Public Use
  Company Number: None

PATIENT
  Age: 23 Year
  Sex: Male
  Weight: 67.5 kg

DRUGS (5)
  1. VITIMAN D [Concomitant]
  2. TURMERIC [Concomitant]
     Active Substance: HERBALS\TURMERIC
  3. SENSODYNE REPAIR AND PROTECT EXTRA FRESH [Suspect]
     Active Substance: STANNOUS FLUORIDE
     Indication: ENAMEL ANOMALY
     Dosage: 1 INCH OF PASTE TWICE A DAY ORAL
     Route: 048
     Dates: start: 20171011, end: 20171015
  4. VITAMIN C [Concomitant]
     Active Substance: ASCORBIC ACID
  5. SENSODYNE REPAIR AND PROTECT EXTRA FRESH [Suspect]
     Active Substance: STANNOUS FLUORIDE
     Indication: SENSITIVITY OF TEETH
     Dosage: 1 INCH OF PASTE TWICE A DAY ORAL
     Route: 048
     Dates: start: 20171011, end: 20171015

REACTIONS (5)
  - Tongue discomfort [None]
  - Tongue dry [None]
  - Swollen tongue [None]
  - Mouth ulceration [None]
  - Glossitis [None]

NARRATIVE: CASE EVENT DATE: 20171011
